FAERS Safety Report 15539012 (Version 1)
Quarter: 2018Q4

REPORT INFORMATION
  Report Type: Spontaneous
  Country: SI (occurrence: SI)
  Receive Date: 20181022
  Receipt Date: 20181022
  Transmission Date: 20190205
  Serious: Yes (Other)
  Sender: FDA-Public Use
  Company Number: SI-PFIZER INC-2018422811

PATIENT
  Age: 27 Year
  Sex: Male

DRUGS (3)
  1. NELARABINE [Suspect]
     Active Substance: NELARABINE
     Dosage: 3100 MG, A TOTAL OF 3 CYCLES
  2. MEDROL [Suspect]
     Active Substance: METHYLPREDNISOLONE
     Dosage: UNK
  3. METHOTREXATE. [Suspect]
     Active Substance: METHOTREXATE
     Dosage: UNK
     Route: 037

REACTIONS (3)
  - Leukopenia [Unknown]
  - Condition aggravated [Unknown]
  - Haemoglobin decreased [Unknown]
